FAERS Safety Report 23859891 (Version 1)
Quarter: 2024Q2

REPORT INFORMATION
  Report Type: Spontaneous
  Country: CZ (occurrence: CZ)
  Receive Date: 20240515
  Receipt Date: 20240515
  Transmission Date: 20240715
  Serious: Yes (Other)
  Sender: FDA-Public Use
  Company Number: CZ-AMGEN-CZESP2024091284

PATIENT
  Age: 46 Year
  Sex: Female
  Weight: 109 kg

DRUGS (11)
  1. NPLATE [Suspect]
     Active Substance: ROMIPLOSTIM
     Indication: Immune thrombocytopenia
     Dosage: UNK
     Route: 065
  2. RITUXIMAB [Suspect]
     Active Substance: RITUXIMAB
     Indication: Product used for unknown indication
     Dosage: 375 MILLIGRAM M2 4X
     Route: 065
  3. BISOPROLOL FUMARATE [Concomitant]
     Active Substance: BISOPROLOL FUMARATE
  4. HYDROCHLOROTHIAZIDE\LOSARTAN POTASSIUM [Concomitant]
     Active Substance: HYDROCHLOROTHIAZIDE\LOSARTAN POTASSIUM
  5. PREDNISONE [Concomitant]
     Active Substance: PREDNISONE
  6. ELTROMBOPAG [Concomitant]
     Active Substance: ELTROMBOPAG
     Dosage: 75 MILLIGRAM, QD
  7. AVATROMBOPAG [Concomitant]
     Active Substance: AVATROMBOPAG
  8. CYCLOSPORINE [Concomitant]
     Active Substance: CYCLOSPORINE
  9. FOSTAMATINIB [Concomitant]
     Active Substance: FOSTAMATINIB
  10. VINCRISTINE [Concomitant]
     Active Substance: VINCRISTINE
  11. CYCLOPHOSPHAMIDE [Concomitant]
     Active Substance: CYCLOPHOSPHAMIDE

REACTIONS (12)
  - Thrombocytopenia [Not Recovered/Not Resolved]
  - COVID-19 pneumonia [Unknown]
  - Embolism [Unknown]
  - Pancreatitis [Unknown]
  - Post procedural haemorrhage [Unknown]
  - Pancreatic pseudoaneurysm [Unknown]
  - Infection [Recovered/Resolved]
  - Uterine leiomyoma [Unknown]
  - Therapeutic product effect decreased [Unknown]
  - Thrombocytosis [Unknown]
  - Intermenstrual bleeding [Unknown]
  - Anaemia [Unknown]

NARRATIVE: CASE EVENT DATE: 20191202
